FAERS Safety Report 24020299 (Version 1)
Quarter: 2024Q2

REPORT INFORMATION
  Report Type: Report from Study
  Country: BY (occurrence: BY)
  Receive Date: 20240627
  Receipt Date: 20240627
  Transmission Date: 20240716
  Serious: Yes (Death, Other)
  Sender: FDA-Public Use
  Company Number: BY-MYLANLABS-2024M1058452

PATIENT
  Sex: Male
  Weight: 42 kg

DRUGS (9)
  1. PRETOMANID [Suspect]
     Active Substance: PRETOMANID
     Indication: Product used for unknown indication
     Dosage: 200 MILLIGRAM, QD (200 MG OD PO)
     Route: 048
     Dates: start: 20230831, end: 20231004
  2. BEDAQUILINE [Suspect]
     Active Substance: BEDAQUILINE
     Indication: Product used for unknown indication
     Dosage: 400 MILLIGRAM, QD (400 MG OD PO FOR 2 WEEKS, THEN 200 MG TIW PO)
     Route: 048
     Dates: start: 20230831, end: 20231004
  3. LINEZOLID [Suspect]
     Active Substance: LINEZOLID
     Indication: Product used for unknown indication
     Dosage: 600 MILLIGRAM, QD (600 MG OD PO)
     Route: 048
     Dates: start: 20230831, end: 20231004
  4. MOXIFLOXACIN [Suspect]
     Active Substance: MOXIFLOXACIN
     Indication: Product used for unknown indication
     Dosage: 400 MILLIGRAM, QD (400 MG OD PO)
     Route: 048
     Dates: start: 20230831, end: 20231004
  5. FERRONAL [Concomitant]
     Indication: Anaemia
     Dosage: 35 MILLIGRAM (35 MG PO)
     Route: 048
     Dates: start: 20230818, end: 20231004
  6. FOLIC ACID [Concomitant]
     Active Substance: FOLIC ACID
     Indication: Anaemia
     Dosage: 2 MILLIGRAM (2 MG PO)
     Route: 048
     Dates: start: 20221122, end: 20231004
  7. MAGNESIUM ASPARTATE\POTASSIUM ASPARTATE [Concomitant]
     Active Substance: MAGNESIUM ASPARTATE\POTASSIUM ASPARTATE
     Indication: Myocardial ischaemia
     Dosage: 1 DOSAGE FORM (1 DOSAGE FORM PO)
     Route: 048
     Dates: start: 20221122, end: 20231004
  8. PYRIDOXINE [Concomitant]
     Active Substance: PYRIDOXINE
     Indication: Prophylaxis
     Dosage: 100 MILLIGRAM (100 MG PO)
     Route: 048
     Dates: start: 20230818, end: 20231004
  9. CEFTRIAXONE [Concomitant]
     Active Substance: CEFTRIAXONE\CEFTRIAXONE SODIUM
     Indication: Empyema
     Dosage: 2 GRAM (2 G IV)
     Route: 042
     Dates: start: 20231002, end: 20231004

REACTIONS (1)
  - Empyema [Fatal]
